FAERS Safety Report 26135402 (Version 1)
Quarter: 2025Q4

REPORT INFORMATION
  Report Type: Spontaneous
  Country: US (occurrence: US)
  Receive Date: 20251209
  Receipt Date: 20251209
  Transmission Date: 20260118
  Serious: No
  Sender: NOVEN
  Company Number: US-NOVEN PHARMACEUTICALS, INC.-2025-NOV-US001200

PATIENT
  Age: 60 Year
  Sex: Female

DRUGS (2)
  1. ESTRADIOL [Suspect]
     Active Substance: ESTRADIOL
     Indication: Menopausal symptoms
     Dosage: UNK, UNKNOWN
     Route: 062
  2. PROGESTERONE [Suspect]
     Active Substance: PROGESTERONE
     Indication: Menopausal symptoms
     Dosage: UNK, UNKNOWN
     Route: 048

REACTIONS (6)
  - Dry skin [Unknown]
  - Dry eye [Unknown]
  - Vulvovaginal dryness [Unknown]
  - Uterine spasm [Unknown]
  - Postmenopausal haemorrhage [Unknown]
  - Product ineffective [Unknown]
